FAERS Safety Report 12426936 (Version 2)
Quarter: 2016Q2

REPORT INFORMATION
  Report Type: Report from Study
  Country: CA (occurrence: CA)
  Receive Date: 20160601
  Receipt Date: 20160614
  Transmission Date: 20160815
  Serious: Yes (Hospitalization)
  Sender: FDA-Public Use
  Company Number: CA-ABBVIE-16K-028-1639481-00

PATIENT
  Sex: Male

DRUGS (1)
  1. HUMIRA [Suspect]
     Active Substance: ADALIMUMAB
     Indication: ANKYLOSING SPONDYLITIS
     Route: 058
     Dates: start: 20151218, end: 20160522

REACTIONS (8)
  - Hypoaesthesia [Recovering/Resolving]
  - Vomiting [Recovering/Resolving]
  - Musculoskeletal pain [Recovering/Resolving]
  - Pain [Not Recovered/Not Resolved]
  - Arthropathy [Unknown]
  - Nausea [Not Recovered/Not Resolved]
  - Drug effect decreased [Not Recovered/Not Resolved]
  - Chest pain [Recovering/Resolving]

NARRATIVE: CASE EVENT DATE: 2016
